FAERS Safety Report 21703263 (Version 1)
Quarter: 2022Q4

REPORT INFORMATION
  Report Type: Other
  Country: CA (occurrence: CA)
  Receive Date: 20221209
  Receipt Date: 20221209
  Transmission Date: 20230112
  Serious: Yes (Other)
  Sender: FDA-Public Use
  Company Number: CA-CELLTRION INC.-2022CA020386

PATIENT

DRUGS (1)
  1. RITUXIMAB [Suspect]
     Active Substance: RITUXIMAB
     Indication: Myasthenia gravis
     Dosage: 1000 MILLIGRAM
     Route: 042

REACTIONS (5)
  - Blindness transient [Recovered/Resolved]
  - Clumsiness [Recovered/Resolved]
  - Gait disturbance [Recovered/Resolved]
  - Off label use [Recovered/Resolved]
  - Off label use [Unknown]
